FAERS Safety Report 8447264-5 (Version None)
Quarter: 2012Q2

REPORT INFORMATION
  Report Type: 
  Country: None (occurrence: None)
  Receive Date: 20120619
  Receipt Date: 20120611
  Transmission Date: 20120825
  Serious: Yes (Hospitalization, Other)
  Sender: FDA-Public Use
  Company Number: PHHY2012FR051115

PATIENT
  Sex: Male
  Weight: 0.87 kg

DRUGS (4)
  1. KEPPRA [Suspect]
     Dosage: MATERNAL DOSE: 5 DF, DAILY
     Route: 064
  2. NITRAZEPAM [Suspect]
     Dosage: MATERNAL DOSE: 25 MG, QD
     Route: 064
  3. TEGRETOL [Suspect]
     Dosage: MATERNAL DOSE: 400 MG, BID
     Route: 064
  4. TOPIRAMATE [Suspect]
     Dosage: MATERNAL DOSE: 100 MG, BID
     Route: 064

REACTIONS (13)
  - DRUG WITHDRAWAL SYNDROME NEONATAL [None]
  - TREMOR [None]
  - RESPIRATORY DISTRESS [None]
  - METABOLIC ACIDOSIS [None]
  - BLOOD PRESSURE INCREASED [None]
  - PREMATURE BABY [None]
  - HYPOTONIA [None]
  - C-REACTIVE PROTEIN INCREASED [None]
  - LOW BIRTH WEIGHT BABY [None]
  - CRYPTORCHISM [None]
  - AGITATION [None]
  - FOETAL EXPOSURE DURING PREGNANCY [None]
  - PNEUMATOSIS [None]
